FAERS Safety Report 24699810 (Version 1)
Quarter: 2024Q4

REPORT INFORMATION
  Report Type: Spontaneous
  Country: CA (occurrence: CA)
  Receive Date: 20241205
  Receipt Date: 20241205
  Transmission Date: 20250115
  Serious: Yes (Other)
  Sender: CELLTRION
  Company Number: CA-PFIZER INC-202101138946

PATIENT

DRUGS (15)
  1. INFLECTRA [Suspect]
     Active Substance: INFLIXIMAB-DYYB
     Indication: Crohn^s disease
     Dosage: 5MG/KG, AT 0,2,6 WEEKS, THEN EVERY 8 WEEKS. ROUND UP TO THE CLOSEST 50 MG.
     Route: 042
     Dates: start: 20210816
  2. INFLECTRA [Suspect]
     Active Substance: INFLIXIMAB-DYYB
     Dosage: 5MG/KG, AT 0,2,6 WEEKS, THEN EVERY 8 WEEKS. ROUND UP TO THE CLOSEST 50 MG.
     Route: 042
     Dates: start: 20210831
  3. INFLECTRA [Suspect]
     Active Substance: INFLIXIMAB-DYYB
     Dosage: 5MG/KG, AT 0,2,6 WEEKS, THEN EVERY 8 WEEKS. ROUND UP TO THE CLOSEST 50 MG.
     Route: 042
     Dates: start: 20220704
  4. INFLECTRA [Suspect]
     Active Substance: INFLIXIMAB-DYYB
     Dosage: 5MG/KG, AT 0,2,6 WEEKS, THEN EVERY 8 WEEKS. ROUND UP TO THE CLOSEST 50 MG.
     Route: 042
     Dates: start: 20220830
  5. INFLECTRA [Suspect]
     Active Substance: INFLIXIMAB-DYYB
     Dosage: 5MG/KG, AT 0,2,6 WEEKS, THEN EVERY 8 WEEKS. ROUND UP TO THE CLOSEST 50 MG.
     Route: 042
     Dates: start: 20221027
  6. INFLECTRA [Suspect]
     Active Substance: INFLIXIMAB-DYYB
     Dosage: 5MG/KG, AT 0,2,6 WEEKS, THEN EVERY 8 WEEKS. ROUND UP TO THE CLOSEST 50 MG.
     Route: 042
     Dates: start: 20230104
  7. INFLECTRA [Suspect]
     Active Substance: INFLIXIMAB-DYYB
     Dosage: 5MG/KG, AT 0,2,6 WEEKS, THEN EVERY 8 WEEKS. ROUND UP TO THE CLOSEST 50 MG.
     Route: 042
     Dates: start: 20230427
  8. INFLECTRA [Suspect]
     Active Substance: INFLIXIMAB-DYYB
     Dosage: 5MG/KG, AT 0,2,6 WEEKS, THEN EVERY 8 WEEKS. ROUND UP TO THE CLOSEST 50 MG.
     Route: 042
     Dates: start: 20230427
  9. INFLECTRA [Suspect]
     Active Substance: INFLIXIMAB-DYYB
     Dosage: 500 MG, EVERY 8 WEEKS
     Route: 042
     Dates: start: 20230621
  10. INFLECTRA [Suspect]
     Active Substance: INFLIXIMAB-DYYB
     Dosage: 500 MG, EVERY 8 WEEKS
     Route: 042
     Dates: start: 20240611
  11. INFLECTRA [Suspect]
     Active Substance: INFLIXIMAB-DYYB
     Dosage: 500 MG, EVERY 8 WEEKS (AFTER 8 WEEKS 3 DAYS)
     Route: 042
     Dates: start: 20240809
  12. INFLECTRA [Suspect]
     Active Substance: INFLIXIMAB-DYYB
     Dosage: 5 MG/KG, ROUND UP TO NEAREST 50 MG
     Route: 042
  13. CYMBALTA [Concomitant]
     Active Substance: DULOXETINE HYDROCHLORIDE
     Indication: Depression
     Dosage: UNK
  14. LYRICA [Concomitant]
     Active Substance: PREGABALIN
     Indication: Neuralgia
     Dosage: UNK
  15. PREDNISONE [Concomitant]
     Active Substance: PREDNISONE
     Dosage: 5 MG, DOSAGE FREQUENCY:  NOT PROVIDED.
     Route: 065

REACTIONS (12)
  - Fall [Unknown]
  - Foot fracture [Unknown]
  - Anal incontinence [Unknown]
  - Malaise [Not Recovered/Not Resolved]
  - Depressed mood [Not Recovered/Not Resolved]
  - Asthenia [Not Recovered/Not Resolved]
  - Anger [Not Recovered/Not Resolved]
  - Fatigue [Not Recovered/Not Resolved]
  - Agitation [Not Recovered/Not Resolved]
  - Condition aggravated [Not Recovered/Not Resolved]
  - Back pain [Unknown]
  - Inappropriate schedule of product administration [Unknown]

NARRATIVE: CASE EVENT DATE: 20221001
